FAERS Safety Report 7033945-7 (Version None)
Quarter: 2010Q4

REPORT INFORMATION
  Report Type: 
  Country: None (occurrence: None)
  Receive Date: 20101007
  Receipt Date: 20101001
  Transmission Date: 20110411
  Serious: Yes (Hospitalization, Other)
  Sender: FDA-Public Use
  Company Number: CA-MERCK-1010USA00389

PATIENT
  Age: 65 Year
  Sex: Female
  Weight: 69 kg

DRUGS (5)
  1. FOSAMAX [Suspect]
     Route: 048
  2. DIDROCAL [Suspect]
     Route: 048
  3. MIACALCIN [Suspect]
     Route: 065
  4. OS-CAL [Concomitant]
     Route: 048
  5. VITAMIN D (UNSPECIFIED) [Concomitant]
     Route: 065

REACTIONS (3)
  - GASTRITIS [None]
  - GASTROINTESTINAL DISORDER [None]
  - OESOPHAGITIS [None]
